FAERS Safety Report 16682233 (Version 1)
Quarter: 2019Q3

REPORT INFORMATION
  Report Type: Spontaneous
  Country: GB (occurrence: GB)
  Receive Date: 20190808
  Receipt Date: 20190808
  Transmission Date: 20191004
  Serious: Yes (Disabling)
  Sender: FDA-Public Use
  Company Number: GB-TEVA-2019-GB-1089609

PATIENT
  Age: 24 Day
  Sex: Male
  Weight: 3 kg

DRUGS (1)
  1. NYSTATIN. [Suspect]
     Active Substance: NYSTATIN
     Dosage: 100,000UNITS/ML  4 ML

REACTIONS (2)
  - Rash macular [Not Recovered/Not Resolved]
  - Vomiting [Unknown]
